FAERS Safety Report 16321494 (Version 2)
Quarter: 2019Q2

REPORT INFORMATION
  Report Type: Report from Study
  Country: US (occurrence: US)
  Receive Date: 20190516
  Receipt Date: 20190523
  Transmission Date: 20190711
  Serious: Yes (Hospitalization, Other)
  Sender: FDA-Public Use
  Company Number: US-GILEAD-2019-0408317

PATIENT
  Age: 62 Year
  Sex: Female

DRUGS (1)
  1. AMBRISENTAN [Suspect]
     Active Substance: AMBRISENTAN
     Indication: PRODUCT USED FOR UNKNOWN INDICATION
     Dosage: 10 MG, QD
     Route: 065
     Dates: start: 20190410

REACTIONS (6)
  - Anaemia [Unknown]
  - Internal haemorrhage [Unknown]
  - Anxiety [Not Recovered/Not Resolved]
  - Fluid retention [Not Recovered/Not Resolved]
  - Haemoglobin decreased [Unknown]
  - Insomnia [Not Recovered/Not Resolved]
